FAERS Safety Report 9970473 (Version 1)
Quarter: 2014Q1

REPORT INFORMATION
  Report Type: Report from Study
  Country: US (occurrence: US)
  Receive Date: 20140306
  Receipt Date: 20140306
  Transmission Date: 20141002
  Serious: No
  Sender: FDA-Public Use
  Company Number: US-ABBVIE-13P-163-1149565-00

PATIENT
  Age: 44 Year
  Sex: Female

DRUGS (11)
  1. HUMIRA [Suspect]
     Indication: RHEUMATOID ARTHRITIS
     Dates: start: 20130809
  2. PRILOSEC [Concomitant]
     Indication: PROPHYLAXIS
     Dosage: 2, 1 AM AND 1 PM
  3. SYNTHROID [Concomitant]
     Indication: HYPOTHYROIDISM
     Dosage: ONE DAY
  4. SYNTHROID [Concomitant]
  5. CHOLESTYRINE POWDER [Concomitant]
     Indication: BLOOD CHOLESTEROL INCREASED
     Dosage: 1/2 PKT EVERYDAY IN JUICE
  6. EVAMIST [Concomitant]
     Indication: HORMONE REPLACEMENT THERAPY
     Dosage: 2 SPRAYS
  7. PREDNISONE [Concomitant]
     Indication: RHEUMATOID ARTHRITIS
  8. CLARITIN-D [Concomitant]
     Indication: HYPERSENSITIVITY
     Dosage: 24 HOUR TABLET
  9. ADVIL OR ALEVE [Concomitant]
     Indication: PAIN
  10. CALCIUM [Concomitant]
     Indication: PRODUCT USED FOR UNKNOWN INDICATION
  11. VITAMIN D3 [Concomitant]
     Indication: PRODUCT USED FOR UNKNOWN INDICATION

REACTIONS (1)
  - Onychoclasis [Not Recovered/Not Resolved]
